FAERS Safety Report 23307677 (Version 1)
Quarter: 2023Q4

REPORT INFORMATION
  Report Type: Spontaneous
  Country: CN (occurrence: CN)
  Receive Date: 20231218
  Receipt Date: 20231218
  Transmission Date: 20240110
  Serious: Yes (Life-Threatening)
  Sender: FDA-Public Use
  Company Number: CN-PFIZER INC-PV202300200071

PATIENT
  Age: 87 Year
  Sex: Male

DRUGS (13)
  1. ZYVOX [Interacting]
     Active Substance: LINEZOLID
     Indication: Infection
     Dosage: 0.6 G, 1X/DAY
     Route: 048
  2. VFEND [Suspect]
     Active Substance: VORICONAZOLE
     Indication: Fungal infection
     Dosage: 0.2 G, 1X/DAY
     Route: 048
  3. PRAMIPEXOLE [Interacting]
     Active Substance: PRAMIPEXOLE
     Indication: Parkinson^s disease
     Dosage: 0.5 MG, 3X/DAY(BEFORE MEALS)
     Route: 048
  4. PRAMIPEXOLE [Interacting]
     Active Substance: PRAMIPEXOLE
     Dosage: 0.25 MG, 2X/DAY
     Route: 048
  5. PRAMIPEXOLE [Interacting]
     Active Substance: PRAMIPEXOLE
     Dosage: 0.5 MG, 3X/DAY
     Route: 048
  6. SELEGILINE [Interacting]
     Active Substance: SELEGILINE
     Indication: Parkinson^s disease
     Dosage: 5 MG, 1X/DAY(AFTER BREAKFAST)
     Route: 048
  7. SELEGILINE [Interacting]
     Active Substance: SELEGILINE
     Dosage: 5 MG, 3X/DAY
     Route: 048
  8. BENSERAZIDE HYDROCHLORIDE\LEVODOPA [Interacting]
     Active Substance: BENSERAZIDE HYDROCHLORIDE\LEVODOPA
     Indication: Parkinson^s disease
     Dosage: 187.5 MG, 125.0 MG, AND 187.5 MG BEFORE MEALS AND 125.0 MG AT BEDTIME
     Route: 048
  9. SINEMET [Interacting]
     Active Substance: CARBIDOPA\LEVODOPA
     Indication: Parkinson^s disease
     Dosage: 50/200 MG, HALF A TABLET AT BEDTIME
     Route: 048
  10. PAROXETINE HYDROCHLORIDE [Interacting]
     Active Substance: PAROXETINE HYDROCHLORIDE\PAROXETINE HYDROCHLORIDE ANHYDROUS
     Indication: Anxiety
     Dosage: 20 MG(AFTER BREAKFAST)
     Route: 048
  11. LORAZEPAM [Concomitant]
     Active Substance: LORAZEPAM
     Indication: Parkinson^s disease
     Dosage: 0.75 MG, DAILY(AT BEDTIME)
     Route: 048
  12. CEFMINOX SODIUM [Concomitant]
     Active Substance: CEFMINOX SODIUM
     Indication: Inflammation
     Route: 041
  13. BIAPENEM [Concomitant]
     Active Substance: BIAPENEM
     Indication: Inflammation
     Dosage: 0.3 G, 2X/DAY

REACTIONS (3)
  - Drug interaction [Recovered/Resolved]
  - Serotonin syndrome [Recovered/Resolved]
  - Off label use [Unknown]
